FAERS Safety Report 24391855 (Version 1)
Quarter: 2024Q4

REPORT INFORMATION
  Report Type: Spontaneous
  Country: US (occurrence: None)
  Receive Date: 20241002
  Receipt Date: 20241002
  Transmission Date: 20250115
  Serious: Yes (Hospitalization)
  Sender: Public
  Company Number: None

PATIENT
  Age: 74 Year
  Sex: Male
  Weight: 88 kg

DRUGS (1)
  1. RIVAROXABAN [Suspect]
     Active Substance: RIVAROXABAN
     Indication: Atrial fibrillation
     Dosage: FREQUENCY : DAILY;?
     Route: 048

REACTIONS (2)
  - Anaemia [None]
  - Haemorrhage [None]

NARRATIVE: CASE EVENT DATE: 20240412
